FAERS Safety Report 11878975 (Version 5)
Quarter: 2017Q1

REPORT INFORMATION
  Report Type: Report from Study
  Country: CA (occurrence: CA)
  Receive Date: 20151230
  Receipt Date: 20170323
  Transmission Date: 20170428
  Serious: Yes (Hospitalization, Other)
  Sender: FDA-Public Use
  Company Number: PHHY2015CA115343

PATIENT
  Age: 47 Year
  Sex: Female
  Weight: 36.28 kg

DRUGS (5)
  1. SANDOSTATIN LAR DEPOT [Suspect]
     Active Substance: OCTREOTIDE ACETATE
     Dosage: 40 MG, QMO
     Route: 030
     Dates: start: 20160309, end: 20160408
  2. SANDOSTATIN LAR DEPOT [Suspect]
     Active Substance: OCTREOTIDE ACETATE
     Indication: DIARRHOEA
     Dosage: 10 MG, QMO (ONCE A MONTH)
     Route: 030
     Dates: start: 20150921, end: 20160226
  3. HUMIRA [Concomitant]
     Active Substance: ADALIMUMAB
     Indication: PRODUCT USED FOR UNKNOWN INDICATION
     Dosage: UNK, BIW
     Route: 058
  4. SANDOSTATIN LAR DEPOT [Suspect]
     Active Substance: OCTREOTIDE ACETATE
     Dosage: 30 MG, QMO
     Route: 030
     Dates: start: 20160506
  5. SANDOSTATIN [Suspect]
     Active Substance: OCTREOTIDE ACETATE
     Indication: DIARRHOEA
     Dosage: 100 UG, QD (ONCE A DAY)
     Route: 058
     Dates: start: 201505

REACTIONS (15)
  - Nausea [Unknown]
  - Blood pressure decreased [Recovered/Resolved]
  - Weight decreased [Unknown]
  - Body temperature decreased [Recovered/Resolved]
  - Pneumonia [Recovered/Resolved]
  - Ear discomfort [Unknown]
  - Weight fluctuation [Unknown]
  - Dizziness [Unknown]
  - Gastrointestinal stoma complication [Unknown]
  - Dehydration [Unknown]
  - Product use issue [Unknown]
  - Migraine [Unknown]
  - Lung infection [Unknown]
  - Multiple sclerosis [Unknown]
  - Weight decreased [Recovered/Resolved]

NARRATIVE: CASE EVENT DATE: 201505
